FAERS Safety Report 7643068-1 (Version None)
Quarter: 2011Q3

REPORT INFORMATION
  Report Type: 
  Country: None (occurrence: None)
  Receive Date: 20110728
  Receipt Date: 20110719
  Transmission Date: 20111222
  Serious: Yes (Hospitalization, Other)
  Sender: FDA-Public Use
  Company Number: BR-ASTRAZENECA-2011SE43766

PATIENT
  Age: 79 Year
  Sex: Female
  Weight: 91 kg

DRUGS (4)
  1. ATACAND [Suspect]
     Indication: HYPERTENSION
     Route: 048
     Dates: end: 20090101
  2. INDAPAMIDE [Concomitant]
     Indication: HYPERTENSION
     Route: 048
  3. METFORMIN HCL [Concomitant]
     Indication: DIABETES MELLITUS
     Route: 048
     Dates: start: 20010101
  4. ATACAND HCT [Suspect]
     Indication: HYPERTENSION
     Dosage: 16/12.5 MG OD
     Route: 048
     Dates: start: 20090101

REACTIONS (9)
  - PAIN IN EXTREMITY [None]
  - NOSOCOMIAL INFECTION [None]
  - SURGERY [None]
  - OEDEMA PERIPHERAL [None]
  - DIABETES MELLITUS [None]
  - KNEE ARTHROPLASTY [None]
  - ARTHRALGIA [None]
  - VULVAL CANCER [None]
  - DYSPEPSIA [None]
